FAERS Safety Report 10822547 (Version 1)
Quarter: 2015Q1

REPORT INFORMATION
  Report Type: Spontaneous
  Country: ES (occurrence: None)
  Receive Date: 20150213
  Receipt Date: 20150213
  Transmission Date: 20150721
  Serious: Yes (Death)
  Sender: FDA-Public Use
  Company Number: ES-DEXPHARM-20150105

PATIENT
  Age: 77 Year
  Sex: Female

DRUGS (1)
  1. DICLOFENAC [Suspect]
     Active Substance: DICLOFENAC

REACTIONS (10)
  - Wound secretion [None]
  - Wound complication [None]
  - Urinary tract infection [None]
  - Sepsis [None]
  - Pyomyositis [None]
  - Injection site haematoma [None]
  - Pneumonia [None]
  - Pseudomonas test positive [None]
  - Asthenia [None]
  - Staphylococcus test positive [None]
